FAERS Safety Report 13115846 (Version 1)
Quarter: 2017Q1

REPORT INFORMATION
  Report Type: Report from Study
  Country: None (occurrence: GT)
  Receive Date: 20170115
  Receipt Date: 20170115
  Transmission Date: 20170428
  Serious: Yes (Hospitalization)
  Sender: FDA-Public Use
  Company Number: GT-ABBVIE-17P-069-1836983-00

PATIENT
  Sex: Male

DRUGS (1)
  1. ZEMPLAR [Suspect]
     Active Substance: PARICALCITOL
     Indication: HYPERPARATHYROIDISM SECONDARY
     Route: 042
     Dates: start: 20160801

REACTIONS (4)
  - Pain [Recovering/Resolving]
  - Blood parathyroid hormone increased [Recovering/Resolving]
  - Swelling [Recovering/Resolving]
  - Cerebral thrombosis [Recovering/Resolving]
